FAERS Safety Report 23817002 (Version 1)
Quarter: 2024Q2

REPORT INFORMATION
  Report Type: Spontaneous
  Country: CA (occurrence: CA)
  Receive Date: 20240504
  Receipt Date: 20240504
  Transmission Date: 20240716
  Serious: Yes (Other)
  Sender: FDA-Public Use
  Company Number: None

PATIENT
  Age: 59 Year
  Sex: Female

DRUGS (9)
  1. METHOTREXATE SODIUM [Suspect]
     Active Substance: METHOTREXATE SODIUM
     Indication: Product used for unknown indication
     Route: 065
  2. INFLIXIMAB [Suspect]
     Active Substance: INFLIXIMAB
     Indication: Crohn^s disease
     Route: 042
  3. CALCIUM [Concomitant]
     Active Substance: CALCIUM
  4. INSULIN LISPRO PROTAMINE SUSPENSION [Concomitant]
  5. JANUVIA [Concomitant]
     Active Substance: SITAGLIPTIN PHOSPHATE
  6. PANTOPRAZOLE [Concomitant]
     Active Substance: PANTOPRAZOLE
  7. PREDNISONE [Concomitant]
     Active Substance: PREDNISONE
  8. INSULIN DEGLUDEC [Concomitant]
     Active Substance: INSULIN DEGLUDEC
  9. VITAMIN D [Concomitant]
     Active Substance: VITAMIN D NOS

REACTIONS (5)
  - Drug level decreased [Unknown]
  - Drug specific antibody present [Unknown]
  - Immunodeficiency [Unknown]
  - Nasopharyngitis [Unknown]
  - Sleep disorder [Unknown]
